FAERS Safety Report 11922170 (Version 1)
Quarter: 2016Q1

REPORT INFORMATION
  Report Type: Spontaneous
  Country: US (occurrence: US)
  Receive Date: 20160115
  Receipt Date: 20160115
  Transmission Date: 20160526
  Serious: No
  Sender: FDA-Public Use
  Company Number: US-BAYER-2016-008405

PATIENT
  Age: 87 Year
  Sex: Female
  Weight: 61.68 kg

DRUGS (1)
  1. CLARITIN [Suspect]
     Active Substance: LORATADINE
     Indication: UPPER-AIRWAY COUGH SYNDROME
     Dosage: 1 DF, QD
     Route: 048
     Dates: start: 20160111

REACTIONS (2)
  - Product use issue [Unknown]
  - Dysphonia [Unknown]

NARRATIVE: CASE EVENT DATE: 20160112
